FAERS Safety Report 9068826 (Version 2)
Quarter: 2013Q2

REPORT INFORMATION
  Report Type: Spontaneous
  Country: IT (occurrence: IT)
  Receive Date: 20130215
  Receipt Date: 20130402
  Transmission Date: 20140414
  Serious: Yes (Hospitalization, Other)
  Sender: FDA-Public Use
  Company Number: IT-PFIZER INC-2013055952

PATIENT
  Age: 44 Year
  Sex: Male

DRUGS (4)
  1. ARACYTIN [Suspect]
     Indication: ACUTE MYELOID LEUKAEMIA
     Dosage: 4 G/M2, DAILY
     Route: 042
     Dates: start: 20120617, end: 20120620
  2. ETOPOSIDE-TEVA [Concomitant]
     Indication: ACUTE MYELOID LEUKAEMIA
     Dosage: 150 MG/M2, UNK
     Route: 042
     Dates: start: 20120617, end: 20120619
  3. CIPROXIN [Concomitant]
     Dosage: 1 G, UNK
     Route: 048
  4. ZYLORIC [Concomitant]
     Dosage: 300 MG, UNK
     Route: 048

REACTIONS (2)
  - Septic shock [Recovered/Resolved]
  - Blood pressure systolic decreased [Unknown]
